FAERS Safety Report 20482840 (Version 1)
Quarter: 2022Q1

REPORT INFORMATION
  Report Type: Spontaneous
  Country: US (occurrence: US)
  Receive Date: 20220217
  Receipt Date: 20220217
  Transmission Date: 20220424
  Serious: Yes (Other)
  Sender: FDA-Public Use
  Company Number: US-GLAXOSMITHKLINE-US2022GSK028534

PATIENT
  Sex: Male

DRUGS (12)
  1. ZANTAC [Suspect]
     Active Substance: RANITIDINE HYDROCHLORIDE
     Dosage: 25 MG OVER THE COUNTER
     Route: 065
     Dates: start: 199901, end: 202011
  2. ZANTAC [Suspect]
     Active Substance: RANITIDINE HYDROCHLORIDE
     Dosage: 75 MG, QD
     Route: 065
     Dates: start: 199901, end: 202011
  3. ZANTAC [Suspect]
     Active Substance: RANITIDINE HYDROCHLORIDE
     Dosage: UNK
  4. ZANTAC [Suspect]
     Active Substance: RANITIDINE HYDROCHLORIDE
     Dosage: 25 MG OVER THE COUNTER
     Route: 065
     Dates: start: 199901, end: 202011
  5. ZANTAC [Suspect]
     Active Substance: RANITIDINE HYDROCHLORIDE
     Dosage: 75 MG, QD
     Route: 065
     Dates: start: 199901, end: 202011
  6. ZANTAC [Suspect]
     Active Substance: RANITIDINE HYDROCHLORIDE
     Dosage: UNK
  7. RANITIDINE [Suspect]
     Active Substance: RANITIDINE
     Dosage: 25 MG OVER THE COUNTER
     Route: 065
     Dates: start: 200001, end: 202001
  8. RANITIDINE [Suspect]
     Active Substance: RANITIDINE
     Dosage: 75 MG OVER THE COUNTER
     Route: 065
     Dates: start: 200001, end: 202001
  9. RANITIDINE [Suspect]
     Active Substance: RANITIDINE
     Dosage: 150 MG, QD
     Route: 065
     Dates: start: 200001, end: 202001
  10. RANITIDINE [Suspect]
     Active Substance: RANITIDINE
     Dosage: 25 MG OVER THE COUNTER
     Route: 065
     Dates: start: 200001, end: 202001
  11. RANITIDINE [Suspect]
     Active Substance: RANITIDINE
     Dosage: 75 MG OVER THE COUNTER
     Route: 065
     Dates: start: 200001, end: 202001
  12. RANITIDINE [Suspect]
     Active Substance: RANITIDINE
     Dosage: 150 MG, QD
     Route: 065
     Dates: start: 200001, end: 202001

REACTIONS (1)
  - Prostate cancer [Unknown]
